FAERS Safety Report 25452646 (Version 2)
Quarter: 2025Q4

REPORT INFORMATION
  Report Type: Spontaneous
  Country: EU (occurrence: EU)
  Receive Date: 20250618
  Receipt Date: 20251117
  Transmission Date: 20260118
  Serious: Yes (Life-Threatening, Hospitalization)
  Sender: MYLAN
  Company Number: EU-PFIZER INC-PV202500067606

PATIENT
  Age: 55 Year
  Sex: Male
  Weight: 87 kg

DRUGS (8)
  1. CANDESARTAN [Suspect]
     Active Substance: CANDESARTAN
     Indication: Hypertension
     Dosage: 8 MILLIGRAM, QD (8 MG, DAILY)
     Dates: end: 20250603
  2. CANDESARTAN [Suspect]
     Active Substance: CANDESARTAN
     Dosage: 8 MILLIGRAM
     Dates: start: 20250405, end: 20250530
  3. SALAZOPYRINE [Suspect]
     Active Substance: SULFASALAZINE
     Indication: Rheumatoid arthritis
     Dosage: 500 MILLIGRAM, QD (1X/DAY)
     Dates: start: 20250504, end: 20250510
  4. SALAZOPYRINE [Suspect]
     Active Substance: SULFASALAZINE
     Dosage: 500 MILLIGRAM, BID (2X/DAY)
     Dates: start: 20250511, end: 20250517
  5. SALAZOPYRINE [Suspect]
     Active Substance: SULFASALAZINE
     Dosage: 500 MILLIGRAM, TID (3X/DAY)
     Dates: start: 20250518, end: 20250523
  6. AMOXICILLIN\CLAVULANATE POTASSIUM [Concomitant]
     Active Substance: AMOXICILLIN\CLAVULANATE POTASSIUM
     Indication: Superinfection
     Dosage: 1 GRAM, BID (2X/DAY)
  7. DEXTROMETHORPHAN HYDROBROMIDE [Concomitant]
     Active Substance: DEXTROMETHORPHAN HYDROBROMIDE
     Dosage: 15 MILLILITER, TID (3X/DAY)
  8. SYMBICORT [Concomitant]
     Active Substance: BUDESONIDE\FORMOTEROL FUMARATE DIHYDRATE
     Dosage: UNK

REACTIONS (6)
  - Drug reaction with eosinophilia and systemic symptoms [Recovering/Resolving]
  - Dermatitis exfoliative generalised [Recovering/Resolving]
  - Cell death [Recovering/Resolving]
  - Haemophagocytic lymphohistiocytosis [Unknown]
  - Clostridium difficile infection [Unknown]
  - Arthropod bite [Unknown]

NARRATIVE: CASE EVENT DATE: 20250515
